FAERS Safety Report 4787360-7 (Version None)
Quarter: 2005Q4

REPORT INFORMATION
  Report Type: 
  Country: None (occurrence: None)
  Receive Date: 20051003
  Receipt Date: 20050920
  Transmission Date: 20060501
  Serious: Yes (Other)
  Sender: FDA-Public Use
  Company Number: 2005131931

PATIENT
  Age: 56 Year
  Sex: Female

DRUGS (5)
  1. SULPERAZON (SULBACTAM, CEFOPERAZONE) [Suspect]
     Indication: INFECTION
     Dosage: 2 GRAM, INTRAVENOUS
     Route: 042
     Dates: start: 20050915, end: 20050915
  2. LAMIVUDINE [Concomitant]
  3. RABEPRAZOLE SODIUM [Concomitant]
  4. URSODIOL [Concomitant]
  5. LIVACT (AMINO ACIDS NOS) [Concomitant]

REACTIONS (1)
  - CONVULSION [None]
